FAERS Safety Report 21092836 (Version 1)
Quarter: 2022Q3

REPORT INFORMATION
  Report Type: Spontaneous
  Country: None (occurrence: BG)
  Receive Date: 20220718
  Receipt Date: 20220718
  Transmission Date: 20221027
  Serious: Yes (Hospitalization)
  Sender: FDA-Public Use
  Company Number: BG-AKCEA THERAPEUTICS, INC.-2022IS003784

PATIENT
  Age: 49 Year
  Sex: Male

DRUGS (7)
  1. TEGSEDI [Suspect]
     Active Substance: INOTERSEN SODIUM
     Route: 058
     Dates: start: 20220621
  2. DEVICE [Suspect]
     Active Substance: DEVICE
  3. MIDODRINE HYDROCHLORIDE [Concomitant]
     Active Substance: MIDODRINE HYDROCHLORIDE
     Route: 065
  4. DUSPATALIN GASTRO [Concomitant]
     Route: 065
  5. PANCRELIPASE [Concomitant]
     Active Substance: PANCRELIPASE
     Route: 065
  6. TORSEMIDE [Concomitant]
     Active Substance: TORSEMIDE
     Route: 065
  7. FUROSEMIDE [Concomitant]
     Active Substance: FUROSEMIDE
     Route: 065

REACTIONS (5)
  - Hypoaesthesia oral [Unknown]
  - Swollen tongue [Unknown]
  - Muscular weakness [Unknown]
  - Hypokinesia [Unknown]
  - Musculoskeletal stiffness [Unknown]

NARRATIVE: CASE EVENT DATE: 20220701
